FAERS Safety Report 17959852 (Version 1)
Quarter: 2020Q2

REPORT INFORMATION
  Report Type: Spontaneous
  Country: DE (occurrence: DE)
  Receive Date: 20200629
  Receipt Date: 20200629
  Transmission Date: 20200714
  Serious: Yes (Hospitalization)
  Sender: FDA-Public Use
  Company Number: DE-NOVOPROD-734097

PATIENT
  Age: 67 Year
  Sex: Male
  Weight: 96 kg

DRUGS (13)
  1. TAMSOLIN [Concomitant]
     Dosage: 0.40 MG, QD (ONE TABLET IN THE MORNING)
     Route: 065
  2. NOVORAPID [Concomitant]
     Active Substance: INSULIN ASPART
     Dosage: INJECTION ACCORDING TO ADJUSTMENT SCHEME
     Route: 065
  3. ENTRESTO [Concomitant]
     Active Substance: SACUBITRIL\VALSARTAN
     Dosage: ONE TABLET IN THE MORNING AND IN THE EVENING
     Route: 065
  4. PROTAPHANE [Concomitant]
     Active Substance: INSULIN HUMAN
     Dosage: DOSAGE: 26 FOR THE NIGHT
     Route: 065
  5. AMLODIPIN [AMLODIPINE BESILATE] [Concomitant]
     Active Substance: AMLODIPINE BESYLATE
     Dosage: ONE TABLET IN THE MORNING AND EVENING
     Route: 065
  6. TORASEMID [Concomitant]
     Active Substance: TORSEMIDE
     Dosage: 10 MG, QD (ONE TABLET IN THE MORNING)
     Route: 065
  7. DEKRISTOL [Concomitant]
     Active Substance: CHOLECALCIFEROL
     Dosage: ONE TABLET IN THE MORNING
     Route: 065
  8. FOLIC ACID. [Concomitant]
     Active Substance: FOLIC ACID
     Dosage: 5 MG, QD (ONE TABLET IN THE MORNING)
     Route: 065
  9. VICTOZA [Suspect]
     Active Substance: LIRAGLUTIDE
     Indication: TYPE 2 DIABETES MELLITUS
     Dosage: UNK(TWO DOSES)
     Route: 065
     Dates: start: 20200606, end: 20200608
  10. ASPIRIN. [Concomitant]
     Active Substance: ASPIRIN
     Dosage: 100 MG, QD (TABLET IN THE MORNING)
     Route: 065
  11. PANTOPRAZOLE [Concomitant]
     Active Substance: PANTOPRAZOLE
     Dosage: ONE TABLET IN THE MORNING
     Route: 065
  12. PERAZIN NEURAXPHARM [Concomitant]
     Dosage: ONE TABLET IN THE MORING, FOR LUNCH AND IN THE EVENING
     Route: 065
  13. SIMVASTATIN. [Concomitant]
     Active Substance: SIMVASTATIN
     Dosage: 40 MG, QD (TABLET IN THE EVENING)
     Route: 065

REACTIONS (5)
  - Body temperature increased [Recovered/Resolved]
  - Fatigue [Recovered/Resolved]
  - Diarrhoea [Recovered/Resolved]
  - Abdominal pain [Recovered/Resolved]
  - Nausea [Recovered/Resolved]

NARRATIVE: CASE EVENT DATE: 20200606
